FAERS Safety Report 11641097 (Version 1)
Quarter: 2015Q4

REPORT INFORMATION
  Report Type: Spontaneous
  Country: US (occurrence: US)
  Receive Date: 20151019
  Receipt Date: 20151019
  Transmission Date: 20160304
  Serious: No
  Sender: FDA-Public Use
  Company Number: US-ENDO PHARMACEUTICALS INC.-2015-000989

PATIENT
  Age: 55 Year
  Sex: Female

DRUGS (1)
  1. AMITRIPTYLINE HCL [Suspect]
     Active Substance: AMITRIPTYLINE
     Indication: PRODUCT USED FOR UNKNOWN INDICATION
     Route: 065

REACTIONS (4)
  - Agitation [Unknown]
  - Nausea [Unknown]
  - Dissociation [Unknown]
  - Tremor [Unknown]

NARRATIVE: CASE EVENT DATE: 20150112
